FAERS Safety Report 16093058 (Version 5)
Quarter: 2022Q4

REPORT INFORMATION
  Report Type: Spontaneous
  Country: CA (occurrence: CA)
  Receive Date: 20190320
  Receipt Date: 20221003
  Transmission Date: 20230113
  Serious: Yes (Other)
  Sender: FDA-Public Use
  Company Number: CA-009507513-1903CAN006459

PATIENT
  Age: 26 Year
  Sex: Female

DRUGS (13)
  1. TEMODAL [Suspect]
     Active Substance: TEMOZOLOMIDE
     Indication: Paraganglion neoplasm malignant
     Dosage: UNK
     Route: 065
  2. TEMODAL [Suspect]
     Active Substance: TEMOZOLOMIDE
     Indication: Phaeochromocytoma malignant
  3. AFINITOR [Suspect]
     Active Substance: EVEROLIMUS
     Indication: Paraganglion neoplasm malignant
     Dosage: UNK
     Route: 065
  4. AFINITOR [Suspect]
     Active Substance: EVEROLIMUS
     Indication: Phaeochromocytoma malignant
     Dosage: UNK
     Route: 065
  5. CYCLOPHOSPHAMIDE [Suspect]
     Active Substance: CYCLOPHOSPHAMIDE
     Indication: Paraganglion neoplasm malignant
     Dosage: 2000 MILLIGRAM
     Route: 065
  6. CYCLOPHOSPHAMIDE [Suspect]
     Active Substance: CYCLOPHOSPHAMIDE
     Indication: Phaeochromocytoma malignant
  7. MESNA [Suspect]
     Active Substance: MESNA
     Indication: Phaeochromocytoma
     Route: 065
  8. MESNA [Suspect]
     Active Substance: MESNA
     Indication: Paraganglion neoplasm malignant
  9. SUNITINIB MALATE [Suspect]
     Active Substance: SUNITINIB MALATE
     Indication: Paraganglion neoplasm malignant
     Route: 065
  10. TOPOTECAN HYDROCHLORIDE [Suspect]
     Active Substance: TOPOTECAN HYDROCHLORIDE
     Indication: Paraganglion neoplasm malignant
     Dosage: UNK
     Route: 065
  11. TOPOTECAN HYDROCHLORIDE [Suspect]
     Active Substance: TOPOTECAN HYDROCHLORIDE
     Indication: Phaeochromocytoma malignant
  12. VANDETANIB [Suspect]
     Active Substance: VANDETANIB
     Indication: Paraganglion neoplasm malignant
     Dosage: UNK
     Route: 065
  13. VANDETANIB [Suspect]
     Active Substance: VANDETANIB
     Indication: Phaeochromocytoma malignant

REACTIONS (8)
  - Metastases to bone [Recovering/Resolving]
  - Metastases to central nervous system [Recovering/Resolving]
  - Metastases to liver [Recovering/Resolving]
  - Insomnia [Recovering/Resolving]
  - Headache [Recovering/Resolving]
  - Pancytopenia [Recovering/Resolving]
  - Off label use [Unknown]
  - Product use in unapproved indication [Unknown]
